FAERS Safety Report 6134942-6 (Version None)
Quarter: 2009Q1

REPORT INFORMATION
  Report Type: 
  Country: None (occurrence: None)
  Receive Date: 20090327
  Receipt Date: 20090317
  Transmission Date: 20090719
  Serious: Yes (Other)
  Sender: FDA-Public Use
  Company Number: IT-AMGEN-UK335780

PATIENT
  Sex: Female
  Weight: 76 kg

DRUGS (1)
  1. PANITUMUMAB [Suspect]
     Indication: COLORECTAL CANCER
     Route: 042
     Dates: start: 20081215, end: 20081229

REACTIONS (3)
  - FOLLICULITIS [None]
  - PARONYCHIA [None]
  - XEROSIS [None]
